FAERS Safety Report 8479171 (Version 6)
Quarter: 2013Q3

REPORT INFORMATION
  Report Type: Report from Study
  Country: DE (occurrence: DE)
  Receive Date: 20120327
  Receipt Date: 20130827
  Transmission Date: 20140515
  Serious: Yes (Hospitalization)
  Sender: FDA-Public Use
  Company Number: DE-ABBOTT-11P-062-0877198-00

PATIENT
  Age: 39 Year
  Sex: Male
  Weight: 79 kg

DRUGS (3)
  1. HUMIRA 40 MG/0.8 ML PEN [Suspect]
     Indication: CROHN^S DISEASE
     Route: 058
     Dates: start: 20110804, end: 20111012
  2. HUMIRA 40 MG/0.8 ML PEN [Suspect]
     Dates: end: 20121104
  3. NOVAMINSULFON [Concomitant]
     Indication: PRODUCT USED FOR UNKNOWN INDICATION
     Dosage: 3 IN ONE DAY

REACTIONS (6)
  - Anal fistula [Unknown]
  - Anal fistula [Recovering/Resolving]
  - Rectal abscess [Unknown]
  - Rectal abscess [Recovering/Resolving]
  - Anal abscess [Not Recovered/Not Resolved]
  - Abscess [Not Recovered/Not Resolved]
